FAERS Safety Report 20622335 (Version 2)
Quarter: 2022Q2

REPORT INFORMATION
  Report Type: Spontaneous
  Country: US (occurrence: US)
  Receive Date: 20220322
  Receipt Date: 20220620
  Transmission Date: 20220721
  Serious: No
  Sender: FDA-Public Use
  Company Number: US-NOVOPROD-896824

PATIENT
  Age: 72 Year
  Sex: Female

DRUGS (3)
  1. WEGOVY [Suspect]
     Active Substance: SEMAGLUTIDE
     Indication: Overweight
     Dosage: UNK
     Route: 058
     Dates: start: 20220111, end: 20220207
  2. WEGOVY [Suspect]
     Active Substance: SEMAGLUTIDE
     Indication: Obesity
  3. WEGOVY [Suspect]
     Active Substance: SEMAGLUTIDE
     Indication: Hypertension
     Dosage: 0.5 MG
     Route: 058
     Dates: start: 20220207, end: 20220218

REACTIONS (5)
  - Nausea [Recovered/Resolved]
  - Abdominal distension [Recovered/Resolved]
  - Dyspepsia [Recovered/Resolved]
  - Constipation [Recovered/Resolved]
  - Off label use [Unknown]

NARRATIVE: CASE EVENT DATE: 20220210
